FAERS Safety Report 16523975 (Version 2)
Quarter: 2019Q3

REPORT INFORMATION
  Report Type: Report from Study
  Country: CZ (occurrence: CZ)
  Receive Date: 20190702
  Receipt Date: 20190915
  Transmission Date: 20191004
  Serious: Yes (Other)
  Sender: FDA-Public Use
  Company Number: PHHY2017CZ081058

PATIENT
  Sex: Female

DRUGS (2)
  1. DABRAFENIB [Suspect]
     Active Substance: DABRAFENIB
     Indication: METASTATIC MALIGNANT MELANOMA
     Dosage: UNK
     Route: 048
     Dates: start: 20170502
  2. TRAMETINIB [Suspect]
     Active Substance: TRAMETINIB
     Indication: METASTATIC MALIGNANT MELANOMA
     Dosage: UNK
     Route: 048
     Dates: start: 20170502

REACTIONS (14)
  - Leukopenia [Recovered/Resolved]
  - Dermatitis [Not Recovered/Not Resolved]
  - Anaemia [Unknown]
  - Diarrhoea [Recovered/Resolved]
  - Bronchitis [Recovered/Resolved]
  - Enteritis infectious [Recovered/Resolved]
  - Hordeolum [Recovered/Resolved]
  - Transaminases increased [Recovered/Resolved]
  - Growth hormone deficiency [Unknown]
  - Blood luteinising hormone decreased [Unknown]
  - Paronychia [Unknown]
  - Paronychia [Recovered/Resolved]
  - Insulin-like growth factor decreased [Unknown]
  - Conjunctivitis [Recovered/Resolved]

NARRATIVE: CASE EVENT DATE: 20170505
